FAERS Safety Report 5442755-3 (Version None)
Quarter: 2007Q3

REPORT INFORMATION
  Report Type: 
  Country: None (occurrence: None)
  Receive Date: 20070904
  Receipt Date: 20070820
  Transmission Date: 20080115
  Serious: No
  Sender: FDA-Public Use
  Company Number: US-BOEHRINGER INGELHEIM PHARMACEUTICALS, INC.-2007-BP-19473BP

PATIENT
  Sex: Female

DRUGS (3)
  1. CATAPRES-TTS-1 [Suspect]
     Indication: HYPERTENSION
     Route: 061
     Dates: start: 20060101, end: 20060601
  2. VERAPAMIL [Concomitant]
     Indication: HYPERTENSION
     Route: 048
  3. VALIUM [Concomitant]
     Indication: ANXIETY

REACTIONS (1)
  - RASH [None]
